FAERS Safety Report 16216120 (Version 4)
Quarter: 2019Q2

REPORT INFORMATION
  Report Type: Report from Study
  Country: US (occurrence: US)
  Receive Date: 20190419
  Receipt Date: 20190627
  Transmission Date: 20190711
  Serious: Yes (Hospitalization)
  Sender: FDA-Public Use
  Company Number: US-SHIRE-US201912842

PATIENT
  Age: 70 Year
  Sex: Female
  Weight: 58.01 kg

DRUGS (5)
  1. GATTEX [Suspect]
     Active Substance: TEDUGLUTIDE\WATER
     Indication: INTESTINAL FISTULA
     Dosage: 0.29 MILLILITER, 1X/DAY:QD
     Route: 058
  2. DILAUDID [Concomitant]
     Active Substance: HYDROMORPHONE HYDROCHLORIDE
     Indication: PRODUCT USED FOR UNKNOWN INDICATION
  3. GATTEX [Suspect]
     Active Substance: TEDUGLUTIDE\WATER
     Indication: SHORT-BOWEL SYNDROME
     Dosage: 0.29 MILLIGRAM, 1X/DAY:QD
     Route: 058
     Dates: start: 20190409
  4. CYCLOBENZAPRINE. [Concomitant]
     Active Substance: CYCLOBENZAPRINE
     Indication: PRODUCT USED FOR UNKNOWN INDICATION
  5. GATTEX [Suspect]
     Active Substance: TEDUGLUTIDE\WATER
     Indication: COLITIS ULCERATIVE
     Dosage: UNK, 1X/DAY:QD
     Route: 058
     Dates: start: 20190410

REACTIONS (4)
  - Asthenia [Unknown]
  - Abdominal pain [Unknown]
  - Dyspnoea [Unknown]
  - Hospitalisation [Unknown]

NARRATIVE: CASE EVENT DATE: 20190409
